FAERS Safety Report 4804689-4 (Version None)
Quarter: 2005Q4

REPORT INFORMATION
  Report Type: 
  Country: None (occurrence: None)
  Receive Date: 20051020
  Receipt Date: 20051011
  Transmission Date: 20060501
  Serious: Yes (Other)
  Sender: FDA-Public Use
  Company Number: JP-NOVOPROD-247726

PATIENT
  Age: 77 Year
  Sex: Male

DRUGS (3)
  1. NOVOSEVEN [Suspect]
     Indication: HAEMOPHILIA
     Dates: start: 20050926, end: 20051004
  2. NOVOSEVEN [Suspect]
     Dosage: 4.8 MG, ADM. 10 TIMES IN 2 DAYS
     Dates: start: 20051010
  3. NOVOSEVEN [Suspect]
     Dosage: 4.8/6.8 MG EVERY 2-3 HOURS
     Route: 042
     Dates: start: 20050923, end: 20050925

REACTIONS (1)
  - WHITE BLOOD CELL COUNT INCREASED [None]
